FAERS Safety Report 7286011-X (Version None)
Quarter: 2011Q1

REPORT INFORMATION
  Report Type: 
  Country: None (occurrence: None)
  Receive Date: 20110210
  Receipt Date: 20110202
  Transmission Date: 20110831
  Serious: Yes (Other)
  Sender: FDA-Public Use
  Company Number: CHPA2011FR02408

PATIENT
  Age: 28 Year
  Sex: Male

DRUGS (2)
  1. NICOPATCH [Suspect]
     Indication: SMOKING CESSATION THERAPY
     Dosage: 21 MG, QD
     Route: 062
     Dates: start: 20100926
  2. CHANTIX [Suspect]
     Dosage: 0.5 MG, QD
     Route: 048
     Dates: start: 20100928, end: 20101001

REACTIONS (3)
  - AGITATION [None]
  - AGGRESSION [None]
  - SUICIDAL IDEATION [None]
